FAERS Safety Report 4345032-7 (Version None)
Quarter: 2004Q2

REPORT INFORMATION
  Report Type: 
  Country: None (occurrence: None)
  Receive Date: 20040420
  Receipt Date: 20040408
  Transmission Date: 20050107
  Serious: No
  Sender: FDA-Public Use
  Company Number: 2004AP02137

PATIENT
  Age: 91 Year
  Sex: Male
  Weight: 535 kg

DRUGS (4)
  1. NEXIUM [Suspect]
     Indication: DUODENAL ULCER
     Dosage: 40 MG DAILY
     Dates: start: 20040315, end: 20040321
  2. NEXIUM [Suspect]
     Indication: PEPTIC ULCER
     Dosage: 40 MG DAILY
     Dates: start: 20040315, end: 20040321
  3. CLARITHROMYCIN [Concomitant]
  4. AMOXICILLIN [Concomitant]

REACTIONS (2)
  - DELIRIUM [None]
  - PSYCHOMOTOR HYPERACTIVITY [None]
